FAERS Safety Report 8596226-6 (Version None)
Quarter: 2012Q3

REPORT INFORMATION
  Report Type: 
  Country: None (occurrence: None)
  Receive Date: 20120815
  Receipt Date: 20120813
  Transmission Date: 20120928
  Serious: Yes (Hospitalization)
  Sender: FDA-Public Use
  Company Number: ES-GLAXOSMITHKLINE-B0822921A

PATIENT
  Sex: Male

DRUGS (4)
  1. PAROXETINE HCL [Suspect]
     Indication: PERSONALITY DISORDER
     Dosage: 20MG PER DAY
     Route: 048
     Dates: start: 20120618, end: 20120720
  2. NOCTAMID [Suspect]
     Indication: PRODUCT USED FOR UNKNOWN INDICATION
     Dosage: 2MG PER DAY
     Route: 048
     Dates: start: 20120618, end: 20120720
  3. PERPHENAZINE [Suspect]
     Indication: PERSONALITY DISORDER
     Dosage: 8MG TWICE PER DAY
     Route: 048
     Dates: start: 20120618, end: 20120720
  4. LOSARTAN WITH HYDROCHLOROTHIAZIDE [Concomitant]
     Route: 048

REACTIONS (6)
  - PARKINSONISM [None]
  - DRUG INTERACTION [None]
  - PNEUMONIA ASPIRATION [None]
  - HYPOTENSION [None]
  - FACIAL BONES FRACTURE [None]
  - FALL [None]
